FAERS Safety Report 8586465-2 (Version None)
Quarter: 2012Q3

REPORT INFORMATION
  Report Type: 
  Country: None (occurrence: None)
  Receive Date: 20120810
  Receipt Date: 20120801
  Transmission Date: 20120928
  Serious: Yes (Hospitalization, Other)
  Sender: FDA-Public Use
  Company Number: CA-BRISTOL-MYERS SQUIBB COMPANY-16692121

PATIENT
  Age: 73 Year
  Sex: Male

DRUGS (2)
  1. IPILIMUMAB [Suspect]
     Indication: MALIGNANT MELANOMA
     Dosage: NO OF COURSE-2
     Route: 042
     Dates: start: 20120516, end: 20120606
  2. MORPHINE SULFATE [Suspect]

REACTIONS (3)
  - CEREBROVASCULAR ACCIDENT [None]
  - BACTERAEMIA [None]
  - COLITIS [None]
